FAERS Safety Report 4410903-X (Version None)
Quarter: 2004Q2

REPORT INFORMATION
  Report Type: 
  Country: None (occurrence: None)
  Receive Date: 20040630
  Receipt Date: 20040416
  Transmission Date: 20050107
  Serious: No
  Sender: FDA-Public Use
  Company Number: 04P-163-0257772-00

PATIENT
  Sex: Male

DRUGS (18)
  1. HUMIRA [Suspect]
     Indication: RHEUMATOID ARTHRITIS
     Dosage: 40 MG, 1 IN 2 WK, SUBCUTANEOUS
     Route: 058
     Dates: start: 20040101
  2. FAMOTIDINE [Concomitant]
  3. LISINOPRIL [Concomitant]
  4. DOXYCYCLINE [Concomitant]
  5. ERYTHROMYCIN [Concomitant]
  6. ZOCOR [Concomitant]
  7. VICODIN [Concomitant]
  8. FOLIC ACID [Concomitant]
  9. CELECOXIB [Concomitant]
  10. HYDROCHLOROTHIAZIDE [Concomitant]
  11. B12 [Concomitant]
  12. ASPIRIN [Concomitant]
  13. DOCUSATE SODIUM [Concomitant]
  14. ATENOLOL [Concomitant]
  15. DIAZEPAM [Concomitant]
  16. EYE DROPS [Concomitant]
  17. GABAPENTIN [Concomitant]
  18. TEMAZEPAM [Concomitant]

REACTIONS (6)
  - BACK PAIN [None]
  - DRY MOUTH [None]
  - PAIN EXACERBATED [None]
  - PRURITUS [None]
  - SCIATICA [None]
  - SWELLING [None]
